FAERS Safety Report 14473311 (Version 1)
Quarter: 2018Q1

REPORT INFORMATION
  Report Type: Spontaneous
  Country: US (occurrence: US)
  Receive Date: 20180201
  Receipt Date: 20180201
  Transmission Date: 20180509
  Serious: No
  Sender: FDA-Public Use
  Company Number: US-AUROBINDO-AUR-APL-2017-33358

PATIENT
  Age: 61 Year
  Sex: Female

DRUGS (3)
  1. LISINOPRIL. [Concomitant]
     Active Substance: LISINOPRIL
     Indication: PRODUCT USED FOR UNKNOWN INDICATION
     Dosage: 20 MG, DAILY
     Route: 065
  2. DULOXETINE DELAYED-RELEASE CAPSULES USP 30 MG [Suspect]
     Active Substance: DULOXETINE
     Indication: PRODUCT USED FOR UNKNOWN INDICATION
     Dosage: 30 MG, UNK
     Route: 048
     Dates: start: 201702, end: 201702
  3. TIZANIDINE HCL [Concomitant]
     Active Substance: TIZANIDINE HYDROCHLORIDE
     Indication: PRODUCT USED FOR UNKNOWN INDICATION
     Dosage: 4 MG, 3 TIMES A DAY
     Route: 065

REACTIONS (11)
  - Malaise [Recovered/Resolved]
  - Pain in jaw [Recovered/Resolved]
  - Tinnitus [Recovered/Resolved]
  - Gastrointestinal disorder [Recovered/Resolved]
  - Eructation [Recovered/Resolved]
  - Anger [Recovered/Resolved]
  - Tremor [Recovered/Resolved]
  - Feeling jittery [Recovered/Resolved]
  - Vision blurred [Recovered/Resolved]
  - Agitation [Recovered/Resolved]
  - Diarrhoea [Recovered/Resolved]

NARRATIVE: CASE EVENT DATE: 201702
